FAERS Safety Report 23918465 (Version 1)
Quarter: 2024Q2

REPORT INFORMATION
  Report Type: Report from Study
  Country: CA (occurrence: CA)
  Receive Date: 20240530
  Receipt Date: 20240530
  Transmission Date: 20240716
  Serious: Yes (Other)
  Sender: FDA-Public Use
  Company Number: CA-SUN PHARMACEUTICAL INDUSTRIES LTD-2024R1-448663

PATIENT
  Age: 3 Year
  Sex: Female

DRUGS (2)
  1. CLOBAZAM [Suspect]
     Active Substance: CLOBAZAM
     Indication: Seizure
     Dosage: UNK
     Route: 065
  2. PHENYTOIN [Suspect]
     Active Substance: PHENYTOIN
     Indication: Seizure
     Dosage: UNK
     Route: 065

REACTIONS (8)
  - Benign neoplasm of thyroid gland [Unknown]
  - Constipation [Unknown]
  - Drug level decreased [Unknown]
  - Osteopenia [Unknown]
  - Pneumonia [Unknown]
  - Scoliosis [Unknown]
  - Therapeutic response decreased [Unknown]
  - Viral infection [Unknown]

NARRATIVE: CASE EVENT DATE: 20230101
